FAERS Safety Report 6141939-9 (Version None)
Quarter: 2009Q2

REPORT INFORMATION
  Report Type: 
  Country: None (occurrence: None)
  Receive Date: 20090402
  Receipt Date: 20090325
  Transmission Date: 20091009
  Serious: Yes (Hospitalization, Other)
  Sender: FDA-Public Use
  Company Number: FR-ELI_LILLY_AND_COMPANY-FR200903006224

PATIENT
  Sex: Female

DRUGS (1)
  1. GEMZAR [Suspect]
     Indication: MALIGNANT HEPATOBILIARY NEOPLASM
     Dosage: 1000 MG/M2, OTHER
     Route: 042
     Dates: start: 20081203, end: 20081217

REACTIONS (2)
  - ALVEOLITIS [None]
  - OEDEMA [None]
